FAERS Safety Report 7147106-4 (Version None)
Quarter: 2010Q4

REPORT INFORMATION
  Report Type: 
  Country: None (occurrence: None)
  Receive Date: 20101209
  Receipt Date: 20090702
  Transmission Date: 20110411
  Serious: Yes (Death, Hospitalization)
  Sender: FDA-Public Use
  Company Number: US-ACTELION-A-US2009-24736

PATIENT

DRUGS (1)
  1. TRACLEER [Suspect]
     Indication: PULMONARY ARTERIAL HYPERTENSION
     Route: 048
     Dates: start: 20090304

REACTIONS (8)
  - BACTERIAL SEPSIS [None]
  - BLOOD IMMUNOGLOBULIN A INCREASED [None]
  - BLOOD IMMUNOGLOBULIN G INCREASED [None]
  - COMA [None]
  - CONVULSION [None]
  - DEATH [None]
  - ESCHERICHIA BACTERAEMIA [None]
  - PROTEIN TOTAL INCREASED [None]
